FAERS Safety Report 11163501 (Version 3)
Quarter: 2017Q2

REPORT INFORMATION
  Report Type: Spontaneous
  Country: US (occurrence: US)
  Receive Date: 20150604
  Receipt Date: 20170606
  Transmission Date: 20170829
  Serious: Yes (Other)
  Sender: FDA-Public Use
  Company Number: US-SA-2014SA159746

PATIENT
  Age: 71 Year
  Sex: Male

DRUGS (16)
  1. LANTUS [Suspect]
     Active Substance: INSULIN GLARGINE
     Indication: TYPE 1 DIABETES MELLITUS
     Dosage: DOSE:17 UNIT(S)
     Route: 065
  2. LEVEMIR [Concomitant]
     Active Substance: INSULIN DETEMIR
     Dosage: DOSE:17 UNIT(S)
  3. APIDRA [Suspect]
     Active Substance: INSULIN GLULISINE
     Indication: TYPE 1 DIABETES MELLITUS
     Route: 065
  4. CASODEX [Concomitant]
     Active Substance: BICALUTAMIDE
  5. LANTUS [Suspect]
     Active Substance: INSULIN GLARGINE
     Indication: TYPE 1 DIABETES MELLITUS
     Dosage: 8 TO 9 UNITS
     Route: 065
  6. HUMALOG [Concomitant]
     Active Substance: INSULIN LISPRO
  7. PLACEBO [Concomitant]
     Active Substance: UNSPECIFIED INGREDIENT
  8. LANTUS [Suspect]
     Active Substance: INSULIN GLARGINE
     Indication: TYPE 1 DIABETES MELLITUS
     Dosage: DOSE:14 UNIT(S)
     Route: 065
  9. LUPRON [Concomitant]
     Active Substance: LEUPROLIDE ACETATE
  10. ESTRADERM [Concomitant]
     Active Substance: ESTRADIOL
     Route: 062
  11. NOVOLOG [Concomitant]
     Active Substance: INSULIN ASPART
  12. APIDRA [Suspect]
     Active Substance: INSULIN GLULISINE
     Indication: TYPE 1 DIABETES MELLITUS
     Dosage: SLIDING SCALE WITH MEALS? DOSE:20 UNIT(S)
     Route: 065
  13. CORTISONE [Concomitant]
     Active Substance: CORTISONE\HYDROCORTISONE
  14. NPH INSULIN [Concomitant]
     Active Substance: INSULIN BEEF
  15. FIRMAGON [Concomitant]
     Active Substance: DEGARELIX ACETATE
     Dosage: 5 MONTHS
  16. ELIGARD [Concomitant]
     Active Substance: LEUPROLIDE ACETATE

REACTIONS (13)
  - Pollakiuria [Unknown]
  - Blood testosterone increased [Not Recovered/Not Resolved]
  - Injection site atrophy [Unknown]
  - Seizure [Unknown]
  - Libido decreased [Unknown]
  - Blood glucose increased [Unknown]
  - Weight increased [Not Recovered/Not Resolved]
  - Blood cholesterol increased [Unknown]
  - Chills [Unknown]
  - Hot flush [Not Recovered/Not Resolved]
  - Hyperkeratosis [Unknown]
  - Hyperhidrosis [Unknown]
  - Blood glucose abnormal [Not Recovered/Not Resolved]

NARRATIVE: CASE EVENT DATE: 201505
